FAERS Safety Report 5195587-8 (Version None)
Quarter: 2006Q4

REPORT INFORMATION
  Report Type: 
  Country: None (occurrence: None)
  Receive Date: 20061226
  Receipt Date: 20061226
  Transmission Date: 20070319
  Serious: No
  Sender: FDA-Public Use
  Company Number: None

PATIENT
  Age: 30 Year
  Sex: Female
  Weight: 52.6173 kg

DRUGS (1)
  1. FLOXIN [Suspect]
     Indication: CYSTITIS
     Dosage: 400 MG AS PRESCRIBED; QD? PO
     Route: 048
     Dates: start: 19940110, end: 19940119

REACTIONS (11)
  - ANXIETY [None]
  - CHOKING [None]
  - DEPRESSION [None]
  - DISTURBANCE IN ATTENTION [None]
  - DYSPNOEA [None]
  - FEAR [None]
  - HALLUCINATION [None]
  - INSOMNIA [None]
  - NERVOUSNESS [None]
  - NIGHTMARE [None]
  - SOCIAL AVOIDANT BEHAVIOUR [None]
